FAERS Safety Report 7931965-9 (Version None)
Quarter: 2011Q4

REPORT INFORMATION
  Report Type: 
  Country: None (occurrence: None)
  Receive Date: 20111121
  Receipt Date: 20111107
  Transmission Date: 20120403
  Serious: Yes (Hospitalization)
  Sender: FDA-Public Use
  Company Number: US-ROCHE-620292

PATIENT

DRUGS (5)
  1. HERCEPTIN [Suspect]
     Dosage: 2 MG/KG, UNK
     Route: 042
  2. PACLITAXEL [Suspect]
     Indication: BREAST CANCER METASTATIC
     Dosage: 80 MG/M2, DAYS1,8,15
     Route: 042
  3. HERCEPTIN [Suspect]
     Indication: BREAST CANCER METASTATIC
     Dosage: 4 MG/KG, UNK
     Route: 042
  4. CARBOPLATIN [Suspect]
     Indication: BREAST CANCER METASTATIC
     Dosage: 2 AUC, DAYS1,8,15
     Route: 042
  5. AVASTIN [Suspect]
     Indication: BREAST CANCER METASTATIC
     Dosage: 10 MG/KG, DAYS 1+AMP;15
     Route: 042

REACTIONS (5)
  - ENDOCARDITIS [None]
  - SEPSIS [None]
  - HAEMOGLOBIN DECREASED [None]
  - NEUTROPENIC INFECTION [None]
  - SKIN INFECTION [None]
